FAERS Safety Report 13832187 (Version 2)
Quarter: 2020Q2

REPORT INFORMATION
  Report Type: Spontaneous
  Country: FR (occurrence: FR)
  Receive Date: 20170804
  Receipt Date: 20200602
  Transmission Date: 20200713
  Serious: Yes (Hospitalization)
  Sender: FDA-Public Use
  Company Number: FR-009507513-1708FRA001385

PATIENT
  Sex: Male

DRUGS (3)
  1. ISENTRESS [Suspect]
     Active Substance: RALTEGRAVIR POTASSIUM
     Indication: HIV TEST POSITIVE
     Dosage: MORNING AND NIGHT (400 MG 2 IN 1 DAY)
     Route: 048
     Dates: start: 2014, end: 2017
  2. INTELENCE [Suspect]
     Active Substance: ETRAVIRINE
     Indication: HIV TEST POSITIVE
     Dosage: MORNING AND NIGHT (200 MG, 2 IN 1 DAY)
     Route: 048
     Dates: start: 2014, end: 2017
  3. VIDEX [Suspect]
     Active Substance: DIDANOSINE
     Indication: HIV TEST POSITIVE
     Dosage: MORNING (400 MG 1 IN 1 DAY)
     Route: 048
     Dates: start: 200001, end: 2017

REACTIONS (4)
  - Fatigue [Not Recovered/Not Resolved]
  - Portal hypertension [Not Recovered/Not Resolved]
  - Eyelid ptosis [Not Recovered/Not Resolved]
  - Dysphonia [Not Recovered/Not Resolved]

NARRATIVE: CASE EVENT DATE: 2016
